FAERS Safety Report 23262864 (Version 1)
Quarter: 2023Q4

REPORT INFORMATION
  Report Type: Spontaneous
  Country: US (occurrence: None)
  Receive Date: 20231204
  Receipt Date: 20231204
  Transmission Date: 20240109
  Serious: Yes (Hospitalization)
  Sender: FDA-Public Use
  Company Number: None

PATIENT
  Age: 88 Year
  Sex: Male

DRUGS (2)
  1. TROSPIUM CHLORIDE ER [Suspect]
     Active Substance: TROSPIUM CHLORIDE
     Dosage: FREQUENCY : DAILY;?
     Route: 048
     Dates: start: 20231026, end: 20231108
  2. LISINOPRIL [Suspect]
     Active Substance: LISINOPRIL
     Route: 048
     Dates: start: 20161031, end: 20231108

REACTIONS (4)
  - Angioedema [None]
  - Oropharyngeal pain [None]
  - Dysphonia [None]
  - Therapy cessation [None]

NARRATIVE: CASE EVENT DATE: 20231109
